FAERS Safety Report 18086945 (Version 1)
Quarter: 2020Q3

REPORT INFORMATION
  Report Type: Spontaneous
  Country: US (occurrence: US)
  Receive Date: 20200729
  Receipt Date: 20200729
  Transmission Date: 20201103
  Serious: Yes (Other)
  Sender: FDA-Public Use
  Company Number: US-BAYER-2020-151344

PATIENT
  Age: 23 Year
  Sex: Female

DRUGS (1)
  1. MIRENA [Suspect]
     Active Substance: LEVONORGESTREL
     Indication: INTRAUTERINE CONTRACEPTION
     Dosage: 20?G PER DAY, CONTINUOUSLY
     Route: 015
     Dates: start: 202005, end: 202007

REACTIONS (3)
  - Drug ineffective [None]
  - Ectopic pregnancy with contraceptive device [None]
  - Device dislocation [Recovered/Resolved]

NARRATIVE: CASE EVENT DATE: 202005
